FAERS Safety Report 7215696-9 (Version None)
Quarter: 2011Q1

REPORT INFORMATION
  Report Type: 
  Country: None (occurrence: None)
  Receive Date: 20110105
  Receipt Date: 20110105
  Transmission Date: 20110831
  Serious: Yes (Hospitalization)
  Sender: FDA-Public Use
  Company Number: None

PATIENT
  Age: 39 Year
  Sex: Male
  Weight: 135 kg

DRUGS (1)
  1. RITUXIMAB [Suspect]
     Dosage: 800 MG ONCE IV
     Route: 042
     Dates: start: 20100903, end: 20100903

REACTIONS (5)
  - RESPIRATORY DEPRESSION [None]
  - TUMOUR LYSIS SYNDROME [None]
  - WHITE BLOOD CELL COUNT INCREASED [None]
  - HAEMOGLOBIN DECREASED [None]
  - ANAPHYLACTIC REACTION [None]
